FAERS Safety Report 8586994-1 (Version None)
Quarter: 2012Q3

REPORT INFORMATION
  Report Type: 
  Country: None (occurrence: None)
  Receive Date: 20120810
  Receipt Date: 20120806
  Transmission Date: 20120928
  Serious: Yes (Hospitalization)
  Sender: FDA-Public Use
  Company Number: JP-AMGEN-JPNCT2012050133

PATIENT
  Age: 40 Year
  Sex: Female
  Weight: 47 kg

DRUGS (7)
  1. CYCLOPHOSPHAMIDE [Concomitant]
     Indication: BREAST CANCER
     Dosage: 600 MG/M2, UNK
     Route: 041
     Dates: start: 20110920
  2. TAXOTERE [Concomitant]
     Indication: BREAST CANCER
     Dosage: DAY1/CYCLE
     Route: 041
     Dates: start: 20110920
  3. PRIMPERAN TAB [Concomitant]
     Indication: PROPHYLAXIS
     Dosage: 10 MG, TID
     Route: 048
     Dates: start: 20110920
  4. FAMOTIDINE [Concomitant]
     Indication: PROPHYLAXIS
     Dosage: 20 MG, QD
     Route: 048
     Dates: start: 20111012
  5. LEVOFLOXACIN [Concomitant]
     Indication: PYREXIA
     Dosage: 20 MG, QD
     Route: 048
     Dates: start: 20111014
  6. PEGFILGRASTIM [Suspect]
     Indication: CHEMOTHERAPY
     Dosage: 3.6 MG, UNK
     Route: 058
     Dates: start: 20111012, end: 20111012
  7. RHYTHMY [Concomitant]
     Indication: INSOMNIA
     Dosage: 1 MG, QD
     Route: 048
     Dates: start: 20110920

REACTIONS (3)
  - FEBRILE NEUTROPENIA [None]
  - URTICARIA [None]
  - MALAISE [None]
